FAERS Safety Report 9849902 (Version 1)
Quarter: 2014Q1

REPORT INFORMATION
  Report Type: Spontaneous
  Country: NL (occurrence: NL)
  Receive Date: 20140128
  Receipt Date: 20140128
  Transmission Date: 20141002
  Serious: Yes (Other)
  Sender: FDA-Public Use
  Company Number: NL-ACTAVIS-2014-00662

PATIENT
  Sex: Female

DRUGS (5)
  1. PERINDOPRIL (UNKNOWN) [Suspect]
     Indication: PRODUCT USED FOR UNKNOWN INDICATION
     Dosage: 2 MG, UNK
     Route: 065
     Dates: start: 2013
  2. PERINDOPRIL (UNKNOWN) [Suspect]
     Dosage: 1/2 OF 8 MG, UNK
     Route: 065
     Dates: start: 2013
  3. PRAVASTATIN (UNKNOWN) [Suspect]
     Indication: PRODUCT USED FOR UNKNOWN INDICATION
     Dosage: 20 MG, UNK
     Route: 065
     Dates: start: 20140109
  4. METFORMIN [Concomitant]
     Indication: PRODUCT USED FOR UNKNOWN INDICATION
     Route: 065
  5. HYDROCHLOROTHIAZIDE [Concomitant]
     Indication: PRODUCT USED FOR UNKNOWN INDICATION
     Route: 065

REACTIONS (3)
  - Arrhythmia [Not Recovered/Not Resolved]
  - Constipation [Not Recovered/Not Resolved]
  - Condition aggravated [Not Recovered/Not Resolved]
